FAERS Safety Report 16552566 (Version 1)
Quarter: 2019Q3

REPORT INFORMATION
  Report Type: Spontaneous
  Country: US (occurrence: US)
  Receive Date: 20190710
  Receipt Date: 20190710
  Transmission Date: 20191004
  Serious: No
  Sender: FDA-Public Use
  Company Number: US-PFIZER INC-2019292038

PATIENT
  Age: 75 Year
  Sex: Female
  Weight: 95.25 kg

DRUGS (2)
  1. ADVIL [Suspect]
     Active Substance: IBUPROFEN
     Indication: BACK PAIN
     Dosage: 400 MG, UNK (200MG, TOOK 2 TABLETS BY MOUTH WITH FOOD)
     Route: 048
     Dates: start: 20190630
  2. ULTRAM [Suspect]
     Active Substance: TRAMADOL HYDROCHLORIDE
     Indication: BACK PAIN
     Dosage: 50 MG, AS NEEDED (50MG, 1 TABLET BY MOUTH TWICE DAILY IF NEEDED)
     Route: 048
     Dates: start: 20190112

REACTIONS (2)
  - Therapeutic product effect incomplete [Unknown]
  - Neuralgia [Unknown]

NARRATIVE: CASE EVENT DATE: 2019
